FAERS Safety Report 5378917-3 (Version None)
Quarter: 2007Q3

REPORT INFORMATION
  Report Type: 
  Country: None (occurrence: None)
  Receive Date: 20070705
  Receipt Date: 20060710
  Transmission Date: 20080115
  Serious: No
  Sender: FDA-Public Use
  Company Number: A0609838A

PATIENT
  Age: 57 Year
  Sex: Female

DRUGS (4)
  1. PARNATE [Suspect]
     Indication: DEPRESSION
     Route: 048
  2. ZITHROMAX [Concomitant]
  3. SYNTHROID [Concomitant]
  4. PREMARIN [Concomitant]

REACTIONS (1)
  - SINUSITIS [None]
